FAERS Safety Report 15714151 (Version 1)
Quarter: 2018Q4

REPORT INFORMATION
  Report Type: Spontaneous
  Country: SE (occurrence: SE)
  Receive Date: 20181212
  Receipt Date: 20181212
  Transmission Date: 20190205
  Serious: Yes (Hospitalization)
  Sender: FDA-Public Use
  Company Number: SE-PFIZER INC-2018505615

PATIENT
  Age: 62 Year
  Sex: Male

DRUGS (16)
  1. TRAMADOL. [Concomitant]
     Active Substance: TRAMADOL
  2. ALLOPURINOL NORDIC DRUGS [Concomitant]
     Active Substance: ALLOPURINOL
  3. ALVEDON FORTE [Concomitant]
  4. GABAPENTIN. [Suspect]
     Active Substance: GABAPENTIN
     Indication: NEURALGIA
     Dosage: 3600 MG, DAILY
     Route: 048
  5. VALTREX [Concomitant]
     Active Substance: VALACYCLOVIR HYDROCHLORIDE
  6. IBUMETIN [Concomitant]
     Active Substance: IBUPROFEN
  7. RITALIN [Concomitant]
     Active Substance: METHYLPHENIDATE HYDROCHLORIDE
  8. BETNOVAT [BETAMETHASONE] [Concomitant]
  9. ARCOXIA [Concomitant]
     Active Substance: ETORICOXIB
  10. ZOVIRAX [Concomitant]
     Active Substance: ACYCLOVIR
  11. THERALEN [Concomitant]
     Active Substance: TRIMEPRAZINE
  12. IMOVANE [Concomitant]
     Active Substance: ZOPICLONE
  13. OMEPRAZOL [Concomitant]
     Active Substance: OMEPRAZOLE
  14. MELATONIN AGP [Concomitant]
  15. CANODERM [Concomitant]
  16. ELOCON [Concomitant]
     Active Substance: MOMETASONE FUROATE

REACTIONS (1)
  - Confusional state [Recovered/Resolved]

NARRATIVE: CASE EVENT DATE: 20180609
